FAERS Safety Report 11647530 (Version 4)
Quarter: 2018Q3

REPORT INFORMATION
  Report Type: Spontaneous
  Country: US (occurrence: US)
  Receive Date: 20151019
  Receipt Date: 20180820
  Transmission Date: 20181010
  Serious: Yes (Disabling, Other)
  Sender: FDA-Public Use
  Company Number: US-ALSI-201500224

PATIENT
  Age: 73 Year
  Sex: Male
  Weight: 77 kg

DRUGS (7)
  1. PHENYLEPHRINE [Concomitant]
     Active Substance: PHENYLEPHRINE\PHENYLEPHRINE HYDROCHLORIDE
  2. ISOFLURANE. [Suspect]
     Active Substance: ISOFLURANE
  3. VECURONIUM [Suspect]
     Active Substance: VECURONIUM BROMIDE
  4. NITROUS OXIDE. [Suspect]
     Active Substance: NITROUS OXIDE
     Indication: ANAESTHESIA PROCEDURE
     Route: 055
  5. EPHEDRINE. [Concomitant]
     Active Substance: EPHEDRINE
  6. FENTANYL. [Suspect]
     Active Substance: FENTANYL
  7. PROPOFOL. [Suspect]
     Active Substance: PROPOFOL

REACTIONS (2)
  - Hypotension [Recovered/Resolved]
  - Ischaemic stroke [Recovering/Resolving]
